FAERS Safety Report 11613720 (Version 1)
Quarter: 2015Q4

REPORT INFORMATION
  Report Type: Spontaneous
  Country: US (occurrence: US)
  Receive Date: 20151008
  Receipt Date: 20151008
  Transmission Date: 20160304
  Serious: Yes (Other)
  Sender: FDA-Public Use
  Company Number: US-FRI-1000079877

PATIENT
  Sex: Female

DRUGS (2)
  1. SYNTHROID [Suspect]
     Active Substance: LEVOTHYROXINE SODIUM
     Indication: HYPOTHYROIDISM
  2. THYROLAR [Suspect]
     Active Substance: LEVOTHYROXINE SODIUM\LIOTHYRONINE SODIUM
     Indication: HYPOTHYROIDISM

REACTIONS (6)
  - Menstrual disorder [Recovered/Resolved]
  - Weight increased [Recovered/Resolved]
  - Stress [Recovered/Resolved]
  - Ovarian cyst [Recovered/Resolved]
  - Alopecia [Recovered/Resolved]
  - Menorrhagia [Recovered/Resolved]
